FAERS Safety Report 19708041 (Version 1)
Quarter: 2021Q3

REPORT INFORMATION
  Report Type: Spontaneous
  Country: US (occurrence: US)
  Receive Date: 20210817
  Receipt Date: 20210817
  Transmission Date: 20211014
  Serious: Yes (Other)
  Sender: FDA-Public Use
  Company Number: None

PATIENT
  Age: 45 Year
  Sex: Female
  Weight: 107.5 kg

DRUGS (2)
  1. LISINOPRIL. [Concomitant]
     Active Substance: LISINOPRIL
  2. REGEN?COV [Suspect]
     Active Substance: CASIRIVIMAB\IMDEVIMAB
     Indication: COVID-19
     Dates: start: 20210812, end: 20210812

REACTIONS (8)
  - Infusion related reaction [None]
  - Dizziness [None]
  - Respiratory rate increased [None]
  - Flushing [None]
  - Chest discomfort [None]
  - Cold sweat [None]
  - Paraesthesia [None]
  - Hypertension [None]

NARRATIVE: CASE EVENT DATE: 20210812
